FAERS Safety Report 16296176 (Version 2)
Quarter: 2019Q2

REPORT INFORMATION
  Report Type: Spontaneous
  Country: US (occurrence: US)
  Receive Date: 20190510
  Receipt Date: 20190625
  Transmission Date: 20190711
  Serious: No
  Sender: FDA-Public Use
  Company Number: US-PFIZER INC-2019191513

PATIENT
  Age: 83 Year
  Sex: Male

DRUGS (4)
  1. HYDRALAZINE [Concomitant]
     Active Substance: HYDRALAZINE HYDROCHLORIDE
     Dosage: UNK
  2. REVATIO [Suspect]
     Active Substance: SILDENAFIL CITRATE
     Indication: HYPERTENSION
     Dosage: 20 MG, 3X/DAY
     Dates: start: 201806
  3. METOPROLOL. [Concomitant]
     Active Substance: METOPROLOL
     Dosage: UNK
  4. LISINOPRIL. [Concomitant]
     Active Substance: LISINOPRIL
     Dosage: UNK

REACTIONS (5)
  - Tremor [Unknown]
  - Off label use [Unknown]
  - Malaise [Unknown]
  - Hypoacusis [Unknown]
  - Product use in unapproved indication [Unknown]
